FAERS Safety Report 10264522 (Version 1)
Quarter: 2014Q2

REPORT INFORMATION
  Report Type: Spontaneous
  Country: US (occurrence: US)
  Receive Date: 20140627
  Receipt Date: 20140627
  Transmission Date: 20141212
  Serious: Yes (Hospitalization)
  Sender: FDA-Public Use
  Company Number: US-BRACCO-010485

PATIENT
  Sex: Female

DRUGS (1)
  1. MULTIHANCE [Suspect]
     Indication: NUCLEAR MAGNETIC RESONANCE IMAGING SPINAL
     Route: 042
     Dates: start: 20140102, end: 20140102

REACTIONS (5)
  - Pulse absent [Unknown]
  - Foaming at mouth [Unknown]
  - Feeling hot [Unknown]
  - Throat tightness [Unknown]
  - Syncope [Unknown]
